FAERS Safety Report 10004632 (Version 2)
Quarter: 2014Q1

REPORT INFORMATION
  Report Type: Spontaneous
  Country: DK (occurrence: CA)
  Receive Date: 20140312
  Receipt Date: 20140319
  Transmission Date: 20141002
  Serious: Yes (Other)
  Sender: FDA-Public Use
  Company Number: CA-FRI-1000060440

PATIENT
  Age: 28 Year
  Sex: Female

DRUGS (2)
  1. ESCITALOPRAM [Suspect]
     Indication: MAJOR DEPRESSION
     Dosage: 20 MG
     Route: 048
     Dates: start: 201211
  2. WELLBUTRIN SR [Concomitant]
     Indication: MAJOR DEPRESSION
     Dosage: 100 MG
     Route: 048
     Dates: end: 20140205

REACTIONS (1)
  - Nephrolithiasis [Not Recovered/Not Resolved]
